FAERS Safety Report 7371382-6 (Version None)
Quarter: 2011Q1

REPORT INFORMATION
  Report Type: 
  Country: None (occurrence: None)
  Receive Date: 20110321
  Receipt Date: 20110321
  Transmission Date: 20110831
  Serious: Yes (Death, Life-Threatening, Hospitalization, Disabling, Congenital Anomaly, Other)
  Sender: FDA-Public Use
  Company Number: None

PATIENT
  Sex: Female
  Weight: 45 kg

DRUGS (2)
  1. INNOHEP [Suspect]
     Indication: FOOT OPERATION
     Dates: start: 20110315, end: 20110315
  2. INNOHEP [Suspect]
     Indication: IMMOBILE
     Dates: start: 20110315, end: 20110315

REACTIONS (4)
  - CHEST PAIN [None]
  - INJECTION SITE PAIN [None]
  - CHEST DISCOMFORT [None]
  - REACTION TO DRUG EXCIPIENTS [None]
